FAERS Safety Report 8054030-1 (Version None)
Quarter: 2012Q1

REPORT INFORMATION
  Report Type: 
  Country: None (occurrence: None)
  Receive Date: 20120111
  Receipt Date: 20111228
  Transmission Date: 20120608
  Serious: Yes (Hospitalization)
  Sender: FDA-Public Use
  Company Number: 2012ST000032

PATIENT
  Age: 70 Year
  Sex: Female

DRUGS (1)
  1. MATULANE [Suspect]
     Indication: HODGKIN'S DISEASE NODULAR SCLEROSIS STAGE UNSPECIFIED
     Dosage: 150 MG;QD;PO
     Route: 048
     Dates: start: 20110926

REACTIONS (1)
  - HOSPITALISATION [None]
